FAERS Safety Report 6708980-6 (Version None)
Quarter: 2010Q2

REPORT INFORMATION
  Report Type: 
  Country: None (occurrence: None)
  Receive Date: 20100504
  Receipt Date: 20100429
  Transmission Date: 20101027
  Serious: Yes (Death, Other)
  Sender: FDA-Public Use
  Company Number: PHEH2010US03323

PATIENT
  Sex: Female
  Weight: 58.957 kg

DRUGS (7)
  1. EXJADE [Suspect]
     Indication: SICKLE CELL ANAEMIA
     Dosage: 1000 MG DAILY
     Route: 048
     Dates: start: 20090807
  2. DILANTIN [Concomitant]
     Dosage: 200 MG, UNK
  3. LYRICA [Concomitant]
     Dosage: 25 MG, UNK
  4. COUMADIN [Concomitant]
  5. SPIRIVA [Concomitant]
     Dosage: 18 UG DAILY
  6. ADVAIR DISKUS 100/50 [Concomitant]
  7. HYDREA [Concomitant]
     Dosage: 500 MG

REACTIONS (5)
  - CARDIAC ARREST [None]
  - CARDIAC FAILURE CONGESTIVE [None]
  - CHEST PAIN [None]
  - DEATH [None]
  - MYOCARDIAL INFARCTION [None]
